FAERS Safety Report 15804467 (Version 2)
Quarter: 2019Q1

REPORT INFORMATION
  Report Type: Report from Study
  Country: FR (occurrence: FR)
  Receive Date: 20190109
  Receipt Date: 20190123
  Transmission Date: 20190417
  Serious: Yes (Hospitalization)
  Sender: FDA-Public Use
  Company Number: FR-PFIZER INC-2019006456

PATIENT
  Age: 76 Year
  Sex: Male
  Weight: 73 kg

DRUGS (10)
  1. LODOZ [Concomitant]
     Active Substance: BISOPROLOL FUMARATE\HYDROCHLOROTHIAZIDE
     Indication: HYPERTENSION
     Dosage: UNK
  2. DEBRIDAT [TRIMEBUTINE] [Concomitant]
     Indication: GASTROOESOPHAGEAL REFLUX DISEASE
     Dosage: UNK
  3. CHONDROFLEX [CHONDROITIN SULFATE SODIUM;GLUCOSAMINE HYDROCHLORIDE] [Concomitant]
     Indication: OSTEOARTHRITIS
     Dosage: UNK
  4. SUNITINIB MALATE. [Suspect]
     Active Substance: SUNITINIB MALATE
     Dosage: 50 MG, DAILY
     Dates: start: 201810, end: 201812
  5. FLEXEA [Concomitant]
     Indication: OSTEOARTHRITIS
     Dosage: UNK
  6. INNOHEP [Concomitant]
     Active Substance: TINZAPARIN SODIUM
     Indication: EMBOLISM
     Dosage: UNK
     Dates: start: 201807
  7. ESOMEPRAZOLE. [Concomitant]
     Active Substance: ESOMEPRAZOLE MAGNESIUM
     Indication: GASTROOESOPHAGEAL REFLUX DISEASE
     Dosage: UNK
  8. TAHOR [Concomitant]
     Active Substance: ATORVASTATIN CALCIUM
     Indication: DYSLIPIDAEMIA
     Dosage: UNK
  9. DAFLON [BIOFLAVONOIDS;DIOSMIN;HESPERIDIN] [Concomitant]
     Indication: POOR PERIPHERAL CIRCULATION
     Dosage: UNK
  10. PARACETAMOL [Concomitant]
     Active Substance: ACETAMINOPHEN
     Indication: OSTEOARTHRITIS
     Dosage: UNK

REACTIONS (3)
  - Asthenia [Not Recovered/Not Resolved]
  - Condition aggravated [Not Recovered/Not Resolved]
  - General physical health deterioration [Recovering/Resolving]

NARRATIVE: CASE EVENT DATE: 20181213
